FAERS Safety Report 4490269-X (Version None)
Quarter: 2004Q4

REPORT INFORMATION
  Report Type: 
  Country: None (occurrence: None)
  Receive Date: 20041101
  Receipt Date: 20041008
  Transmission Date: 20050328
  Serious: Yes (Hospitalization)
  Sender: FDA-Public Use
  Company Number: FR-MERCK-0410FRA00043

PATIENT
  Age: 79 Year
  Sex: Female

DRUGS (2)
  1. TRUSOPT [Suspect]
     Indication: GLAUCOMA
     Route: 047
     Dates: start: 20040709, end: 20040716
  2. FUSIDATE SODIUM [Suspect]
     Indication: FURUNCLE
     Route: 048
     Dates: start: 20040701, end: 20040708

REACTIONS (2)
  - PRURITUS [None]
  - RASH MACULO-PAPULAR [None]
